FAERS Safety Report 4368115-4 (Version None)
Quarter: 2004Q2

REPORT INFORMATION
  Report Type: 
  Country: None (occurrence: None)
  Receive Date: 20040602
  Receipt Date: 20040525
  Transmission Date: 20050107
  Serious: Yes (Hospitalization)
  Sender: FDA-Public Use
  Company Number: FR-BRISTOL-MYERS SQUIBB COMPANY-12596581

PATIENT
  Age: 49 Year
  Sex: Male

DRUGS (4)
  1. ELISOR [Suspect]
     Route: 048
     Dates: start: 20030201
  2. KARDEGIC [Concomitant]
  3. SECTRAL [Concomitant]
  4. ISOCARD [Concomitant]

REACTIONS (4)
  - BLOOD CREATINE PHOSPHOKINASE INCREASED [None]
  - FRACTURE [None]
  - JOINT DISLOCATION [None]
  - REFLEX SYMPATHETIC DYSTROPHY [None]
